FAERS Safety Report 5561596-X (Version None)
Quarter: 2007Q4

REPORT INFORMATION
  Report Type: 
  Country: None (occurrence: None)
  Receive Date: 20071215
  Receipt Date: 20071016
  Transmission Date: 20080405
  Serious: No
  Sender: FDA-Public Use
  Company Number: US-AMGEN-KDL247110

PATIENT
  Sex: Female

DRUGS (5)
  1. ENBREL [Suspect]
     Indication: RHEUMATOID ARTHRITIS
     Route: 058
     Dates: start: 20070915
  2. PLAQUENIL [Concomitant]
     Dates: start: 20070101
  3. METHOTREXATE [Concomitant]
     Dates: start: 20070101
  4. FOLIC ACID [Concomitant]
  5. PREDNISONE [Concomitant]

REACTIONS (10)
  - ARTHRALGIA [None]
  - DECREASED APPETITE [None]
  - EYE SWELLING [None]
  - HEADACHE [None]
  - INFLUENZA [None]
  - INJECTION SITE PAIN [None]
  - JOINT STIFFNESS [None]
  - JOINT SWELLING [None]
  - NAUSEA [None]
  - SINUSITIS [None]
